FAERS Safety Report 6590219-6 (Version None)
Quarter: 2010Q1

REPORT INFORMATION
  Report Type: 
  Country: None (occurrence: None)
  Receive Date: 20100219
  Receipt Date: 20100211
  Transmission Date: 20100710
  Serious: Yes (Hospitalization, Other)
  Sender: FDA-Public Use
  Company Number: US-ASTRAZENECA-2003UW09578

PATIENT
  Age: 48 Year
  Sex: Female

DRUGS (5)
  1. SEROQUEL [Suspect]
     Indication: SCHIZOPHRENIA
     Route: 048
  2. SEROQUEL [Suspect]
     Route: 048
  3. SEROQUEL [Suspect]
     Route: 048
  4. BENADRYL [Concomitant]
     Indication: INSOMNIA
     Route: 048
  5. LORAZEPAM [Concomitant]

REACTIONS (7)
  - AGITATION [None]
  - ANXIETY [None]
  - DELUSION [None]
  - HEART RATE INCREASED [None]
  - OVERDOSE [None]
  - URINARY HESITATION [None]
  - URINARY RETENTION [None]
